FAERS Safety Report 26120955 (Version 1)
Quarter: 2025Q4

REPORT INFORMATION
  Report Type: Spontaneous
  Country: EU (occurrence: EU)
  Receive Date: 20251204
  Receipt Date: 20251204
  Transmission Date: 20260118
  Serious: Yes (Life-Threatening, Hospitalization, Disabling)
  Sender: CHEPLAPHARM
  Company Number: None

PATIENT
  Age: 25 Year
  Sex: Male
  Weight: 90 kg

DRUGS (2)
  1. OLANZAPINE [Suspect]
     Active Substance: OLANZAPINE
     Indication: Tachyphrenia
     Dosage: TAKEN EVENINGS?DAILY DOSE: 2.5 MILLIGRAM
     Route: 048
     Dates: start: 2017, end: 202508
  2. OLANZAPINE [Suspect]
     Active Substance: OLANZAPINE
     Indication: Feeling abnormal
     Dosage: TAKEN EVENINGS?DAILY DOSE: 2.5 MILLIGRAM
     Route: 048
     Dates: start: 2017, end: 202508

REACTIONS (5)
  - Disturbance in social behaviour [Recovered/Resolved]
  - Feeling abnormal [Recovered/Resolved]
  - Suicidal behaviour [Recovered/Resolved]
  - Social avoidant behaviour [Unknown]
  - Off label use [Recovered/Resolved]

NARRATIVE: CASE EVENT DATE: 20170101
